FAERS Safety Report 19116236 (Version 1)
Quarter: 2021Q2

REPORT INFORMATION
  Report Type: Spontaneous
  Country: BY (occurrence: BY)
  Receive Date: 20210409
  Receipt Date: 20210409
  Transmission Date: 20210717
  Serious: Yes (Death, Hospitalization, Other)
  Sender: FDA-Public Use
  Company Number: BY-VALIDUS PHARMACEUTICALS LLC-BY-2021VAL000684

PATIENT
  Age: 30 Year
  Sex: Female

DRUGS (4)
  1. CEFOTAXIME SODIUM [Suspect]
     Active Substance: CEFOTAXIME SODIUM
     Indication: POSTOPERATIVE CARE
  2. CLEXANE [Suspect]
     Active Substance: ENOXAPARIN SODIUM
     Indication: THROMBOSIS PROPHYLAXIS
     Dosage: UNK
     Dates: start: 20181009, end: 20181012
  3. OXYTOCIN. [Suspect]
     Active Substance: OXYTOCIN
     Indication: POSTOPERATIVE CARE
  4. KETOROLAC [Suspect]
     Active Substance: KETOROLAC TROMETHAMINE
     Indication: POSTOPERATIVE CARE

REACTIONS (8)
  - Exposure during pregnancy [Unknown]
  - Embolism [Fatal]
  - Syncope [Unknown]
  - Premature baby [Unknown]
  - Loss of consciousness [Fatal]
  - Condition aggravated [Fatal]
  - General physical health deterioration [Unknown]
  - Fall [Fatal]

NARRATIVE: CASE EVENT DATE: 20181011
